FAERS Safety Report 9805809 (Version 1)
Quarter: 2014Q1

REPORT INFORMATION
  Report Type: Spontaneous
  Country: US (occurrence: US)
  Receive Date: 20140109
  Receipt Date: 20140109
  Transmission Date: 20141002
  Serious: Yes (Other)
  Sender: FDA-Public Use
  Company Number: US-BAYER-2014-000766

PATIENT
  Age: 66 Year
  Sex: Female

DRUGS (1)
  1. BAYER GENUINE ASPIRIN ORIGINAL STRENGTH [Suspect]
     Indication: BACK PAIN
     Dosage: 2 DF, PRN
     Route: 048

REACTIONS (2)
  - Ulcer haemorrhage [Recovered/Resolved]
  - Dyspepsia [Recovered/Resolved]
